FAERS Safety Report 23634887 (Version 1)
Quarter: 2024Q1

REPORT INFORMATION
  Report Type: Spontaneous
  Country: DE (occurrence: DE)
  Receive Date: 20240315
  Receipt Date: 20240315
  Transmission Date: 20240409
  Serious: Yes (Life-Threatening, Hospitalization, Other)
  Sender: FDA-Public Use
  Company Number: DE-BRISTOL-MYERS SQUIBB COMPANY-2024-038682

PATIENT
  Age: 28 Year
  Sex: Female

DRUGS (2)
  1. NIVOLUMAB [Suspect]
     Active Substance: NIVOLUMAB
     Indication: Metastatic malignant melanoma
     Dates: start: 2020, end: 2020
  2. IPILIMUMAB [Suspect]
     Active Substance: IPILIMUMAB
     Indication: Metastatic malignant melanoma
     Dates: start: 2020, end: 2020

REACTIONS (8)
  - Immune-mediated thyroiditis [Unknown]
  - Hypersomnia [Unknown]
  - Visual impairment [Unknown]
  - Weight decreased [Unknown]
  - Hypothyroidism [Unknown]
  - Type 1 diabetes mellitus [Unknown]
  - Diabetic ketoacidotic hyperglycaemic coma [Recovered/Resolved]
  - COVID-19 [Unknown]

NARRATIVE: CASE EVENT DATE: 20201001
